FAERS Safety Report 17516023 (Version 1)
Quarter: 2020Q1

REPORT INFORMATION
  Report Type: Spontaneous
  Country: ES (occurrence: ES)
  Receive Date: 20200309
  Receipt Date: 20200309
  Transmission Date: 20200409
  Serious: Yes (Other)
  Sender: FDA-Public Use
  Company Number: ES-PFIZER INC-2020098975

PATIENT
  Age: 28 Year
  Sex: Female
  Weight: 90 kg

DRUGS (1)
  1. LOETTE DIARIO [Suspect]
     Active Substance: ETHINYL ESTRADIOL\LEVONORGESTREL
     Indication: POLYCYSTIC OVARIES
     Dosage: 1 DF, CYCLIC (ONE TABLET A DAY)
     Route: 048
     Dates: start: 20181028

REACTIONS (3)
  - Off label use [Unknown]
  - Hyperhidrosis [Unknown]
  - Product use in unapproved indication [Unknown]

NARRATIVE: CASE EVENT DATE: 20181028
